FAERS Safety Report 6282637-0 (Version None)
Quarter: 2009Q3

REPORT INFORMATION
  Report Type: 
  Country: None (occurrence: None)
  Receive Date: 20090724
  Receipt Date: 20090720
  Transmission Date: 20100115
  Serious: Yes (Death, Hospitalization)
  Sender: FDA-Public Use
  Company Number: PHHY2009BR29941

PATIENT
  Sex: Male

DRUGS (1)
  1. EXFORGE [Suspect]
     Indication: HYPERTENSION
     Dosage: 160/5MG
     Dates: start: 20010401

REACTIONS (3)
  - BRAIN NEOPLASM MALIGNANT [None]
  - CONDITION AGGRAVATED [None]
  - HEADACHE [None]
